FAERS Safety Report 18024975 (Version 4)
Quarter: 2022Q2

REPORT INFORMATION
  Report Type: Spontaneous
  Country: CA (occurrence: CA)
  Receive Date: 20200715
  Receipt Date: 20220613
  Transmission Date: 20220721
  Serious: Yes (Other)
  Sender: FDA-Public Use
  Company Number: None

PATIENT
  Age: 3 Month
  Sex: Male

DRUGS (7)
  1. ETOPOSIDE [Suspect]
     Active Substance: ETOPOSIDE
     Indication: Chloroma
  2. METHOTREXATE [Suspect]
     Active Substance: METHOTREXATE
     Indication: Brain sarcoma
  3. FLUDARABINE [Suspect]
     Active Substance: FLUDARABINE PHOSPHATE
     Indication: Brain sarcoma
  4. CYTARABINE [Suspect]
     Active Substance: CYTARABINE
     Indication: Brain sarcoma
     Dosage: POWDER FOR SOLUTION INTRATHECAL
     Route: 037
  5. DAUNORUBICIN [Suspect]
     Active Substance: DAUNORUBICIN
     Indication: Chloroma
     Dosage: INJECTION
     Route: 042
  6. HYDROCORTISONE SODIUM SUCCINATE [Suspect]
     Active Substance: HYDROCORTISONE SODIUM SUCCINATE
     Indication: Brain sarcoma
  7. ASPARAGINASE [Suspect]
     Active Substance: ASPARAGINASE
     Indication: Chloroma
     Dosage: POWDER FOR SOLUTION INTRAMUSCULAR
     Route: 030

REACTIONS (10)
  - Brain sarcoma [Unknown]
  - Cerebellar tumour [Unknown]
  - General physical health deterioration [Unknown]
  - Infection [Unknown]
  - Hydrocephalus [Unknown]
  - Leukaemia recurrent [Unknown]
  - Pyrexia [Unknown]
  - Septic shock [Unknown]
  - Off label use [Unknown]
  - Neoplasm progression [Unknown]
